FAERS Safety Report 12360310 (Version 3)
Quarter: 2016Q4

REPORT INFORMATION
  Report Type: Spontaneous
  Country: DE (occurrence: DE)
  Receive Date: 20160512
  Receipt Date: 20161117
  Transmission Date: 20170207
  Serious: Yes (Hospitalization, Other)
  Sender: FDA-Public Use
  Company Number: DE-JNJFOC-20160508305

PATIENT
  Age: 67 Year
  Sex: Female

DRUGS (10)
  1. VALPROAT [Concomitant]
     Active Substance: VALPROATE SODIUM
     Route: 048
     Dates: start: 2009
  2. RAMIPRIL. [Concomitant]
     Active Substance: RAMIPRIL
     Route: 048
  3. TRANSTEC [Concomitant]
     Active Substance: BUPRENORPHINE
     Route: 062
  4. TAVOR (LORAZEPAM) [Concomitant]
     Active Substance: LORAZEPAM
     Indication: SCHIZOAFFECTIVE DISORDER
     Route: 048
     Dates: start: 20160125
  5. BIFITERAL [Concomitant]
     Active Substance: LACTULOSE
     Route: 065
  6. ASPIRIN. [Concomitant]
     Active Substance: ASPIRIN
     Route: 048
  7. PERAZINE [Interacting]
     Active Substance: PERAZINE
     Indication: SCHIZOAFFECTIVE DISORDER
     Route: 048
     Dates: start: 20160215, end: 20160217
  8. PANTOZOL [Concomitant]
     Active Substance: PANTOPRAZOLE SODIUM
     Route: 048
  9. RISPERIDONE. [Suspect]
     Active Substance: RISPERIDONE
     Indication: SCHIZOAFFECTIVE DISORDER
     Route: 048
     Dates: start: 20160125, end: 20160218
  10. ZOPICLON [Concomitant]
     Active Substance: ZOPICLONE
     Route: 048

REACTIONS (5)
  - Fall [Recovering/Resolving]
  - Somnolence [Recovering/Resolving]
  - Parkinsonism [Recovering/Resolving]
  - Drug interaction [Recovering/Resolving]
  - Sedation [Recovering/Resolving]

NARRATIVE: CASE EVENT DATE: 20160215
